FAERS Safety Report 7503572-3 (Version None)
Quarter: 2011Q2

REPORT INFORMATION
  Report Type: 
  Country: None (occurrence: None)
  Receive Date: 20110525
  Receipt Date: 20110523
  Transmission Date: 20111010
  Serious: No
  Sender: FDA-Public Use
  Company Number: US-PFIZER INC-2011111290

PATIENT
  Sex: Male
  Weight: 96.145 kg

DRUGS (2)
  1. EFFEXOR XR [Suspect]
     Indication: DEPRESSION
     Dosage: UNK, DAILY
     Route: 048
     Dates: start: 20100910, end: 20110410
  2. ZOCOR [Concomitant]
     Dosage: UNK

REACTIONS (1)
  - TINNITUS [None]
